FAERS Safety Report 9709787 (Version 1)
Quarter: 2013Q4

REPORT INFORMATION
  Report Type: Spontaneous
  Country: US (occurrence: US)
  Receive Date: 20131126
  Receipt Date: 20131126
  Transmission Date: 20140711
  Serious: No
  Sender: FDA-Public Use
  Company Number: US-009507513-1311USA009297

PATIENT
  Age: 61 Year
  Sex: Female

DRUGS (4)
  1. DULERA [Suspect]
     Indication: BRACHYTHERAPY TO LUNG
     Dosage: 2 PUFFS, BID
     Route: 055
     Dates: start: 201310
  2. DULERA [Suspect]
     Indication: CHRONIC OBSTRUCTIVE PULMONARY DISEASE
     Dosage: 2 PUFFS, BID
     Route: 055
     Dates: start: 20131106
  3. PREDNISONE [Concomitant]
  4. ANTINEOPLASTIC (UNSPECIFIED) [Concomitant]

REACTIONS (4)
  - Dyspnoea [Not Recovered/Not Resolved]
  - Choking sensation [Not Recovered/Not Resolved]
  - Drug ineffective [Not Recovered/Not Resolved]
  - Product quality issue [Unknown]
